FAERS Safety Report 4677093-X (Version None)
Quarter: 2005Q2

REPORT INFORMATION
  Report Type: 
  Country: None (occurrence: None)
  Receive Date: 20050525
  Receipt Date: 20050525
  Transmission Date: 20051028
  Serious: Yes (Hospitalization)
  Sender: FDA-Public Use
  Company Number: None

PATIENT
  Age: 51 Year
  Sex: Male
  Weight: 87.1 kg

DRUGS (1)
  1. QUETIAPINE [Suspect]

REACTIONS (3)
  - ASTHENIA [None]
  - OVERDOSE [None]
  - TREMOR [None]
